FAERS Safety Report 8915543 (Version 1)
Quarter: 2012Q4

REPORT INFORMATION
  Report Type: 
  Country: US (occurrence: US)
  Receive Date: 20121119
  Receipt Date: 20121119
  Transmission Date: 20130627
  Serious: Yes (Other)
  Sender: FDA-Public Use
  Company Number: US-JNJFOC-20121104322

PATIENT
  Age: 33 None
  Sex: Female
  Weight: 52.62 kg

DRUGS (1)
  1. PRECISE EXTRA STRENGTH PAIN RELIEVING CREAM [Suspect]
     Indication: MYALGIA
     Dosage: enough to cover the area
     Route: 061
     Dates: start: 20121005, end: 20121008

REACTIONS (2)
  - Burns second degree [Recovering/Resolving]
  - Scar [Unknown]
